FAERS Safety Report 6248204-X (Version None)
Quarter: 2009Q2

REPORT INFORMATION
  Report Type: 
  Country: None (occurrence: None)
  Receive Date: 20090629
  Receipt Date: 20080403
  Transmission Date: 20091009
  Serious: Yes (Hospitalization)
  Sender: FDA-Public Use
  Company Number: US-ASTRAZENECA-2007UW21980

PATIENT
  Age: 529 Month
  Sex: Female
  Weight: 77.1 kg

DRUGS (14)
  1. SEROQUEL [Suspect]
     Indication: BIPOLAR DISORDER
     Route: 048
     Dates: start: 20030508, end: 20031028
  2. SEROQUEL [Suspect]
     Indication: DEPRESSION
     Route: 048
     Dates: start: 20030508, end: 20031028
  3. SEROQUEL [Suspect]
     Dosage: 100-600 MG
     Route: 048
     Dates: start: 20030508
  4. SEROQUEL [Suspect]
     Dosage: 100-600 MG
     Route: 048
     Dates: start: 20030508
  5. RISPERDAL [Concomitant]
  6. WELLBUTRIN SR [Concomitant]
     Dosage: 200 MG DISPENSED
     Dates: start: 20030508
  7. PROZAC [Concomitant]
     Dosage: 90 MG DISPENSED
     Dates: start: 20030703
  8. HUMULIN R [Concomitant]
     Dosage: STRENGTH 100 UNIT/ML
     Dates: start: 20030829
  9. PREDNISONE [Concomitant]
     Dosage: 20 MG DISPENSED
     Dates: start: 20030828
  10. ALPRAZOLAM [Concomitant]
     Dosage: 0.25 MG DISPENSED
     Dates: start: 20030828
  11. METFORMIN HYDROCHLORIDE [Concomitant]
     Dates: start: 20040818
  12. AMITRIPTYLINE HYDROCHLORIDE [Concomitant]
     Dosage: 10 MG DISPENSED
     Dates: start: 20040818
  13. VIOXX [Concomitant]
     Dosage: 25 MG DISPENSED
     Dates: start: 20040424
  14. PROTONIX [Concomitant]
     Dates: start: 20040818

REACTIONS (4)
  - DIABETES MELLITUS [None]
  - MYOCARDIAL INFARCTION [None]
  - PNEUMONIA [None]
  - TYPE 2 DIABETES MELLITUS [None]
